FAERS Safety Report 23516546 (Version 1)
Quarter: 2024Q1

REPORT INFORMATION
  Report Type: Spontaneous
  Country: US (occurrence: None)
  Receive Date: 20240212
  Receipt Date: 20240212
  Transmission Date: 20240410
  Serious: No
  Sender: FDA-Public Use
  Company Number: None

PATIENT
  Age: 37 Year
  Sex: Female
  Weight: 98.1 kg

DRUGS (1)
  1. QELBREE [Suspect]
     Active Substance: VILOXAZINE HYDROCHLORIDE
     Indication: Attention deficit hyperactivity disorder
     Dosage: FREQUENCY : DAILY; IN MORNING?
     Route: 048
     Dates: start: 20230815, end: 20231213

REACTIONS (4)
  - Wrong technique in product usage process [None]
  - Headache [None]
  - Swelling [None]
  - Drug ineffective [None]

NARRATIVE: CASE EVENT DATE: 20231215
